FAERS Safety Report 20577577 (Version 1)
Quarter: 2022Q1

REPORT INFORMATION
  Report Type: Spontaneous
  Country: US (occurrence: None)
  Receive Date: 20220310
  Receipt Date: 20220310
  Transmission Date: 20220423
  Serious: Yes (Hospitalization)
  Sender: FDA-Public Use
  Company Number: None

PATIENT
  Age: 65 Year
  Sex: Male

DRUGS (1)
  1. METHOTREXATE SODIUM [Suspect]
     Active Substance: METHOTREXATE SODIUM
     Indication: Product used for unknown indication
     Dosage: FREQUENCY : WEEKLY;?
     Route: 048
     Dates: start: 20220128, end: 20220225

REACTIONS (8)
  - Stomatitis [None]
  - Dysphagia [None]
  - Odynophagia [None]
  - Erythema multiforme [None]
  - Pyrexia [None]
  - Chills [None]
  - Cough [None]
  - Rash [None]

NARRATIVE: CASE EVENT DATE: 20220226
